FAERS Safety Report 7110835-2 (Version None)
Quarter: 2010Q4

REPORT INFORMATION
  Report Type: 
  Country: None (occurrence: None)
  Receive Date: 20101116
  Receipt Date: 20101116
  Transmission Date: 20110411
  Serious: Yes (Hospitalization, Other)
  Sender: FDA-Public Use
  Company Number: None

PATIENT
  Age: 48 Year
  Sex: Female
  Weight: 111.1313 kg

DRUGS (2)
  1. SAVELLA [Suspect]
     Indication: FIBROMYALGIA
     Dosage: 1 TAB BID PO
     Route: 048
     Dates: start: 20091017, end: 20091214
  2. SAVELLA [Suspect]
     Indication: PAIN
     Dosage: 1 TAB BID PO
     Route: 048
     Dates: start: 20091017, end: 20091214

REACTIONS (5)
  - EYE MOVEMENT DISORDER [None]
  - FOOD ALLERGY [None]
  - GENERAL PHYSICAL HEALTH DETERIORATION [None]
  - MULTIPLE ALLERGIES [None]
  - STATUS ASTHMATICUS [None]
